FAERS Safety Report 23400064 (Version 1)
Quarter: 2024Q1

REPORT INFORMATION
  Report Type: Spontaneous
  Country: US (occurrence: US)
  Receive Date: 20240114
  Receipt Date: 20240114
  Transmission Date: 20240409
  Serious: No
  Sender: FDA-Public Use
  Company Number: US-ELI_LILLY_AND_COMPANY-US202401006268

PATIENT
  Age: 58 Year
  Sex: Female

DRUGS (4)
  1. INSULIN LISPRO [Suspect]
     Active Substance: INSULIN LISPRO
     Indication: Type 2 diabetes mellitus
     Dosage: 6 U, OTHER  (AT BREAKFAST)
     Route: 058
     Dates: start: 202212
  2. INSULIN LISPRO [Suspect]
     Active Substance: INSULIN LISPRO
     Dosage: 8 U, TID (THREE DOSES A DAY)
     Route: 058
     Dates: start: 202212
  3. INSULIN LISPRO [Suspect]
     Active Substance: INSULIN LISPRO
     Dosage: 6 U, OTHER (AT BREAKFAST)
     Route: 058
  4. INSULIN LISPRO [Suspect]
     Active Substance: INSULIN LISPRO
     Dosage: 8 U, TID (THREE DOSES A DAY
     Route: 058

REACTIONS (2)
  - COVID-19 [Unknown]
  - Memory impairment [Unknown]
